FAERS Safety Report 15330749 (Version 1)
Quarter: 2018Q3

REPORT INFORMATION
  Report Type: Spontaneous
  Country: US (occurrence: US)
  Receive Date: 20180824
  Receipt Date: 20180824
  Transmission Date: 20181010
  Serious: No
  Sender: FDA-Public Use
  Company Number: None

PATIENT
  Age: 83 Year
  Sex: Male
  Weight: 95.25 kg

DRUGS (3)
  1. OMEGA 3 [Concomitant]
     Active Substance: OMEGA-3 FATTY ACIDS
  2. VITAMINS [Concomitant]
     Active Substance: VITAMINS
  3. PREDNISON 10MG [Suspect]
     Active Substance: PREDNISONE
     Indication: GOUT
     Dosage: ?          QUANTITY:IHID/L?3/32 ^W;?
     Route: 048

REACTIONS (3)
  - Macular degeneration [None]
  - Visual impairment [None]
  - Vision blurred [None]

NARRATIVE: CASE EVENT DATE: 20180712
